FAERS Safety Report 9058296 (Version 1)
Quarter: 2013Q1

REPORT INFORMATION
  Report Type: Spontaneous
  Country: BR (occurrence: BR)
  Receive Date: 20130211
  Receipt Date: 20130211
  Transmission Date: 20140127
  Serious: Yes (Hospitalization)
  Sender: FDA-Public Use
  Company Number: BR-JNJFOC-20130201126

PATIENT
  Age: 29 None
  Sex: Female
  Weight: 120 kg

DRUGS (6)
  1. XARELTO [Suspect]
     Indication: DEEP VEIN THROMBOSIS
     Route: 048
     Dates: start: 20130126
  2. YASMIN [Suspect]
     Indication: CONTRACEPTION
     Route: 048
     Dates: start: 201209, end: 201301
  3. OLMESARTAN [Concomitant]
     Indication: HYPERTENSION
     Route: 048
  4. BEZAFIBRATO [Concomitant]
     Indication: BLOOD TRIGLYCERIDES INCREASED
     Route: 048
     Dates: start: 2011
  5. RIVOTRIL [Concomitant]
     Indication: ANXIETY
     Route: 048
     Dates: start: 201301
  6. METFORMIN [Concomitant]
     Indication: DIABETES MELLITUS
     Route: 048
     Dates: start: 2012

REACTIONS (2)
  - Deep vein thrombosis [Not Recovered/Not Resolved]
  - Menorrhagia [Not Recovered/Not Resolved]
